FAERS Safety Report 11379748 (Version 3)
Quarter: 2016Q1

REPORT INFORMATION
  Report Type: Spontaneous
  Country: CA (occurrence: CA)
  Receive Date: 20150814
  Receipt Date: 20160224
  Transmission Date: 20160525
  Serious: Yes (Other)
  Sender: FDA-Public Use
  Company Number: CA-ROCHE-1620025

PATIENT
  Age: 63 Year
  Sex: Female

DRUGS (10)
  1. ENBREL [Suspect]
     Active Substance: ETANERCEPT
     Indication: RHEUMATOID ARTHRITIS
     Route: 065
     Dates: start: 200806
  2. KINERET [Suspect]
     Active Substance: ANAKINRA
     Indication: PRODUCT USED FOR UNKNOWN INDICATION
     Route: 058
     Dates: start: 201203, end: 201406
  3. HUMIRA [Suspect]
     Active Substance: ADALIMUMAB
     Indication: PRODUCT USED FOR UNKNOWN INDICATION
     Route: 058
     Dates: start: 200809
  4. ORENCIA [Suspect]
     Active Substance: ABATACEPT
     Indication: PRODUCT USED FOR UNKNOWN INDICATION
     Route: 065
     Dates: end: 201011
  5. HYDROXYCHLOROQUINE [Suspect]
     Active Substance: HYDROXYCHLOROQUINE
     Indication: PRODUCT USED FOR UNKNOWN INDICATION
     Route: 065
  6. METHOTREXATE [Suspect]
     Active Substance: METHOTREXATE
     Route: 058
     Dates: start: 201404
  7. XELJANZ [Concomitant]
     Active Substance: TOFACITINIB CITRATE
     Route: 065
  8. LEFLUNOMIDE. [Suspect]
     Active Substance: LEFLUNOMIDE
     Indication: PRODUCT USED FOR UNKNOWN INDICATION
     Route: 065
     Dates: start: 200902, end: 200909
  9. METHOTREXATE [Suspect]
     Active Substance: METHOTREXATE
     Indication: PRODUCT USED FOR UNKNOWN INDICATION
     Route: 048
  10. ACTEMRA [Suspect]
     Active Substance: TOCILIZUMAB
     Indication: PRODUCT USED FOR UNKNOWN INDICATION
     Dosage: THERAPY DURATION: 2 YEARS
     Route: 065
     Dates: start: 201101, end: 201203

REACTIONS (8)
  - Cutaneous vasculitis [Unknown]
  - Drug intolerance [Unknown]
  - Rheumatoid arthritis [Unknown]
  - Spinal column stenosis [Unknown]
  - Oral mucosal exfoliation [Unknown]
  - Drug ineffective [Unknown]
  - Rash [Unknown]
  - Secretion discharge [Unknown]
